FAERS Safety Report 4461056-3 (Version None)
Quarter: 2004Q3

REPORT INFORMATION
  Report Type: 
  Country: None (occurrence: None)
  Receive Date: 20040923
  Receipt Date: 20040913
  Transmission Date: 20050211
  Serious: Yes (Death)
  Sender: FDA-Public Use
  Company Number: US-JNJFOC-20040903618

PATIENT
  Age: 31 Year
  Sex: Male

DRUGS (4)
  1. IBUPROFEN [Suspect]
     Indication: SUICIDE ATTEMPT
  2. VERAPAMIL [Suspect]
     Indication: SUICIDE ATTEMPT
  3. TRAZODONE HCL [Suspect]
     Indication: SUICIDE ATTEMPT
  4. DIPHENHYDRAMINE (DIPHENHYDRAMINE) [Suspect]
     Indication: SUICIDE ATTEMPT

REACTIONS (5)
  - BRADYCARDIA [None]
  - CARDIAC ARREST [None]
  - COMA [None]
  - HYPOTENSION [None]
  - PULMONARY OEDEMA [None]
